FAERS Safety Report 21377900 (Version 2)
Quarter: 2023Q1

REPORT INFORMATION
  Report Type: Report from Study
  Country: US (occurrence: US)
  Receive Date: 20220926
  Receipt Date: 20230323
  Transmission Date: 20230418
  Serious: Yes (Other)
  Sender: FDA-Public Use
  Company Number: US-ABBVIE-4129881

PATIENT
  Sex: Female

DRUGS (1)
  1. HUMIRA [Suspect]
     Active Substance: ADALIMUMAB
     Indication: Product used for unknown indication
     Route: 058

REACTIONS (6)
  - Lupus-like syndrome [Unknown]
  - Alopecia [Unknown]
  - Weight decreased [Unknown]
  - Muscle atrophy [Unknown]
  - Protein total decreased [Unknown]
  - Mobility decreased [Unknown]
